FAERS Safety Report 20520321 (Version 1)
Quarter: 2022Q1

REPORT INFORMATION
  Report Type: Spontaneous
  Country: GB (occurrence: None)
  Receive Date: 20220225
  Receipt Date: 20220225
  Transmission Date: 20220424
  Serious: Yes (Other)
  Sender: FDA-Public Use
  Company Number: 2022A086514

PATIENT
  Age: 71 Year
  Sex: Female
  Weight: 88.9 kg

DRUGS (2)
  1. DAPAGLIFLOZIN [Suspect]
     Active Substance: DAPAGLIFLOZIN
     Indication: Diabetes mellitus
     Dosage: 10MG X 1 ADAY
     Route: 048
     Dates: start: 19990108
  2. DAPAGLIFLOZIN [Suspect]
     Active Substance: DAPAGLIFLOZIN
     Indication: Dyspnoea
     Dosage: 10MG X 1 ADAY
     Route: 048
     Dates: start: 19990108

REACTIONS (2)
  - Blood glucose increased [Not Recovered/Not Resolved]
  - Adverse drug reaction [Not Recovered/Not Resolved]

NARRATIVE: CASE EVENT DATE: 20220101
